FAERS Safety Report 16248267 (Version 3)
Quarter: 2019Q3

REPORT INFORMATION
  Report Type: Spontaneous
  Country: US (occurrence: US)
  Receive Date: 20190429
  Receipt Date: 20190720
  Transmission Date: 20191004
  Serious: Yes (Hospitalization)
  Sender: FDA-Public Use
  Company Number: US-UNITED THERAPEUTICS-UNT-2019-007410

PATIENT
  Age: 74 Year
  Sex: Male
  Weight: 80.73 kg

DRUGS (3)
  1. TYVASO [Suspect]
     Active Substance: TREPROSTINIL
     Dosage: 18 ?G, UNK
     Dates: start: 201904
  2. TYVASO [Suspect]
     Active Substance: TREPROSTINIL
     Indication: PULMONARY ARTERIAL HYPERTENSION
     Dosage: 60-120 ?G, QID
     Dates: start: 20190410, end: 20190424
  3. TYVASO [Suspect]
     Active Substance: TREPROSTINIL
     Dosage: 18-54 MICROGRAMS, QID

REACTIONS (5)
  - Dyspnoea [Recovered/Resolved]
  - Hypoxia [Recovered/Resolved]
  - Oedema peripheral [Recovered/Resolved]
  - Off label use [Unknown]
  - Oxygen consumption increased [Recovered/Resolved]

NARRATIVE: CASE EVENT DATE: 201904
